FAERS Safety Report 11528431 (Version 1)
Quarter: 2015Q3

REPORT INFORMATION
  Report Type: Spontaneous
  Country: US (occurrence: US)
  Receive Date: 20150921
  Receipt Date: 20150921
  Transmission Date: 20151125
  Serious: No
  Sender: FDA-Public Use
  Company Number: US-ASTRAZENECA-2015SE87886

PATIENT
  Age: 81 Year
  Sex: Male

DRUGS (4)
  1. PREDNISONE. [Suspect]
     Active Substance: PREDNISONE
     Dosage: NON AZ PRODUCT
     Route: 065
     Dates: start: 20150907
  2. ASPIRIN. [Concomitant]
     Active Substance: ASPIRIN
     Dosage: 0.85 MG
  3. METOPROLOL SUCCINATE. [Suspect]
     Active Substance: METOPROLOL SUCCINATE
     Indication: ARRHYTHMIA
     Route: 048
     Dates: start: 201508, end: 20150907
  4. LASIX [Concomitant]
     Active Substance: FUROSEMIDE
     Dosage: 40 MG

REACTIONS (5)
  - Adverse drug reaction [Recovering/Resolving]
  - Peripheral swelling [Recovering/Resolving]
  - Rash [Recovering/Resolving]
  - Urticaria [Recovering/Resolving]
  - Off label use [Recovered/Resolved]

NARRATIVE: CASE EVENT DATE: 2015
